FAERS Safety Report 11343447 (Version 2)
Quarter: 2015Q4

REPORT INFORMATION
  Report Type: Spontaneous
  Country: CH (occurrence: CH)
  Receive Date: 20150806
  Receipt Date: 20151005
  Transmission Date: 20160304
  Serious: Yes (Death, Other)
  Sender: FDA-Public Use
  Company Number: CH-ROCHE-1618236

PATIENT
  Sex: Female
  Weight: 42 kg

DRUGS (1)
  1. HERCEPTIN [Suspect]
     Active Substance: TRASTUZUMAB
     Indication: BREAST CANCER METASTATIC
     Route: 042
     Dates: start: 20141009, end: 20141121

REACTIONS (2)
  - Cachexia [Not Recovered/Not Resolved]
  - Gastrointestinal haemorrhage [Fatal]
